FAERS Safety Report 6815207-3 (Version None)
Quarter: 2010Q2

REPORT INFORMATION
  Report Type: 
  Country: None (occurrence: None)
  Receive Date: 20100630
  Receipt Date: 20100630
  Transmission Date: 20101027
  Serious: Yes (Hospitalization)
  Sender: FDA-Public Use
  Company Number: None

PATIENT
  Sex: Female
  Weight: 62.3 kg

DRUGS (3)
  1. CARBOPLATIN [Suspect]
     Dosage: 780 MG GIVEN INTRAPERITONEAL
     Route: 033
     Dates: end: 20100620
  2. TAXOTERE [Suspect]
     Dosage: 127 MG
     Dates: end: 20100611
  3. TAXOL [Suspect]
     Dosage: 101 MG GIVEN INTRAPERITONEAL
     Route: 033
     Dates: end: 20100620

REACTIONS (11)
  - DECREASED APPETITE [None]
  - EAR PAIN [None]
  - FATIGUE [None]
  - HYPOKALAEMIA [None]
  - NAUSEA [None]
  - NEUTROPHIL COUNT DECREASED [None]
  - ODYNOPHAGIA [None]
  - OROPHARYNGEAL PAIN [None]
  - PYREXIA [None]
  - WEIGHT DECREASED [None]
  - WHITE BLOOD CELL COUNT DECREASED [None]
